FAERS Safety Report 16427687 (Version 7)
Quarter: 2020Q4

REPORT INFORMATION
  Report Type: Report from Study
  Country: JP (occurrence: JP)
  Receive Date: 20190613
  Receipt Date: 20201202
  Transmission Date: 20210113
  Serious: No
  Sender: FDA-Public Use
  Company Number: JP-BRISTOL-MYERS SQUIBB COMPANY-BMS-2019-056190

PATIENT
  Age: 58 Year
  Sex: Male
  Weight: 61.9 kg

DRUGS (4)
  1. NIVOLUMAB [Suspect]
     Active Substance: NIVOLUMAB
     Indication: RENAL CELL CARCINOMA STAGE IV
     Dosage: 240 MILLIGRAM
     Route: 041
     Dates: start: 20190426, end: 20190426
  2. IPILIMUMAB [Suspect]
     Active Substance: IPILIMUMAB
     Indication: RENAL CELL CARCINOMA STAGE IV
     Dosage: 1 MILLIGRAM/KILOGRAM
     Route: 041
     Dates: start: 20190426, end: 20190426
  3. IPILIMUMAB [Suspect]
     Active Substance: IPILIMUMAB
     Dosage: 1 MILLIGRAM/KILOGRAM
     Route: 065
     Dates: start: 20190521
  4. NIVOLUMAB [Suspect]
     Active Substance: NIVOLUMAB
     Dosage: 240 MILLIGRAM
     Route: 065
     Dates: start: 20190521, end: 20190521

REACTIONS (3)
  - Liver function test increased [Recovered/Resolved]
  - Dry eye [Recovered/Resolved]
  - Salivary duct inflammation [Recovered/Resolved]

NARRATIVE: CASE EVENT DATE: 20190527
